FAERS Safety Report 15539624 (Version 1)
Quarter: 2018Q4

REPORT INFORMATION
  Report Type: Spontaneous
  Country: KR (occurrence: KR)
  Receive Date: 20181023
  Receipt Date: 20181023
  Transmission Date: 20190205
  Serious: Yes (Death, Other)
  Sender: FDA-Public Use
  Company Number: KR-009507513-1810KOR007971

PATIENT
  Sex: Female

DRUGS (25)
  1. KEYTRUDA [Suspect]
     Active Substance: PEMBROLIZUMAB
     Indication: ENDOMETRIAL CANCER RECURRENT
     Dosage: QUANTITY:2
     Route: 042
     Dates: start: 20180920
  2. ABSTRAL [Concomitant]
     Active Substance: FENTANYL CITRATE
     Dosage: QUANTITY:1
     Route: 048
     Dates: start: 20180821
  3. NAKAI [Concomitant]
     Dosage: QUANTITY?2
     Dates: start: 20180920
  4. TRIAXONE [Concomitant]
     Dosage: QUANTITY:1
     Dates: start: 20180921
  5. SODIUM CHLORIDE. [Concomitant]
     Active Substance: SODIUM CHLORIDE
     Dosage: QUANTITY:4
     Dates: start: 20180919
  6. SODIUM CHLORIDE. [Concomitant]
     Active Substance: SODIUM CHLORIDE
     Dosage: QUANTITY:3
     Dates: start: 20180907, end: 20180911
  7. SODIUM CHLORIDE. [Concomitant]
     Active Substance: SODIUM CHLORIDE
     Dosage: QUANTITY:5
     Dates: start: 20180912, end: 20180918
  8. NEXIUM I.V. [Concomitant]
     Active Substance: ESOMEPRAZOLE SODIUM
     Dosage: QUANTITY:2
     Dates: start: 20180913, end: 20180919
  9. ALBUMIN HUMAN [Concomitant]
     Active Substance: ALBUMIN HUMAN
     Dosage: 20%,100 ML, QUANTITY:1
     Dates: start: 20180917
  10. YUHAN DEXAMETHASONE (DEXAMETHASONE SODIUM PHOSPHATE) [Concomitant]
     Dosage: QUANTITY:2
     Dates: start: 20180919
  11. MEGACE F [Concomitant]
     Dosage: SUSPENSION,QUANTITY:1
     Dates: start: 20180818, end: 20180921
  12. ABSTRAL [Concomitant]
     Active Substance: FENTANYL CITRATE
     Dosage: QUANTITY:2
     Route: 048
     Dates: start: 20180820
  13. ABSTRAL [Concomitant]
     Active Substance: FENTANYL CITRATE
     Dosage: QUANTITY:1
     Route: 048
     Dates: start: 20180820
  14. LIDOTOP [Concomitant]
     Dosage: 10X14CM?,QUANTITY:1
     Dates: start: 20180822
  15. IRCODON [Concomitant]
     Active Substance: OXYCODONE HYDROCHLORIDE
     Dosage: QUANTITY:3
     Route: 048
     Dates: start: 20180819
  16. MEGACE F [Concomitant]
     Dosage: SUSPENSION,QUANTITY:2
     Dates: start: 20180822
  17. ONDANT [Concomitant]
     Dosage: QUANTITY:1
     Dates: start: 20180907
  18. HEPARIN SODIUM. [Concomitant]
     Active Substance: HEPARIN SODIUM
     Dosage: QUANTITY:1
     Dates: start: 20180916, end: 20180921
  19. LAXIN (BISACODYL) [Concomitant]
     Dosage: QUANTITY:3
     Dates: start: 20180918
  20. SYNTHYROXINE [Concomitant]
     Active Substance: LEVOTHYROXINE SODIUM
     Dosage: QUANTITY:1
     Route: 048
     Dates: start: 20180818, end: 20180920
  21. LAXIN (BISACODYL) [Concomitant]
     Dosage: QUANTITY:2
     Dates: start: 20180920
  22. ALBUMIN HUMAN [Concomitant]
     Active Substance: ALBUMIN HUMAN
     Dosage: 5%,250ML,QUANTITY:2
     Dates: start: 20180918
  23. CHLORPHENIRAMINE MALEATE. [Concomitant]
     Active Substance: CHLORPHENIRAMINE MALEATE
     Dosage: QUANTITY:2
     Dates: start: 20180918
  24. IRCODON [Concomitant]
     Active Substance: OXYCODONE HYDROCHLORIDE
     Dosage: QUANTITY:2
     Route: 048
     Dates: start: 20180818
  25. ALOXI [Concomitant]
     Active Substance: PALONOSETRON HYDROCHLORIDE
     Dosage: QUANTITY:1
     Dates: start: 20180919

REACTIONS (2)
  - Sepsis [Fatal]
  - Product use in unapproved indication [Unknown]

NARRATIVE: CASE EVENT DATE: 201809
